FAERS Safety Report 22148756 (Version 1)
Quarter: 2023Q1

REPORT INFORMATION
  Report Type: Spontaneous
  Country: US (occurrence: US)
  Receive Date: 20230328
  Receipt Date: 20230328
  Transmission Date: 20230418
  Serious: Yes (Hospitalization)
  Sender: FDA-Public Use
  Company Number: US-CTI BIOPHARMA-2023US03432

PATIENT

DRUGS (9)
  1. VONJO [Suspect]
     Active Substance: PACRITINIB
     Indication: Product used for unknown indication
     Dosage: UNK UNK, BID
     Dates: start: 20230109, end: 20230120
  2. VONJO [Suspect]
     Active Substance: PACRITINIB
     Dosage: UNK
     Route: 048
     Dates: end: 20230202
  3. LYRICA [Concomitant]
     Active Substance: PREGABALIN
  4. ACYCLOVIR [Concomitant]
     Active Substance: ACYCLOVIR
  5. ZOFRAN [Concomitant]
     Active Substance: ONDANSETRON HYDROCHLORIDE
  6. TEMAZEPAM [Concomitant]
     Active Substance: TEMAZEPAM
  7. BACLOFEN [Concomitant]
     Active Substance: BACLOFEN
  8. NORTRIPTYLINE [Concomitant]
     Active Substance: NORTRIPTYLINE
  9. LEVOTHYROXINE [Concomitant]
     Active Substance: LEVOTHYROXINE

REACTIONS (1)
  - Diarrhoea [Unknown]

NARRATIVE: CASE EVENT DATE: 20230101
